FAERS Safety Report 11469604 (Version 1)
Quarter: 2015Q3

REPORT INFORMATION
  Report Type: Spontaneous
  Country: US (occurrence: None)
  Receive Date: 20150908
  Receipt Date: 20150908
  Transmission Date: 20151125
  Serious: Yes (Other)
  Sender: FDA-Public Use
  Company Number: ADR-2015-01395

PATIENT
  Age: 32 Year
  Sex: Male

DRUGS (2)
  1. BACLOFEN INTRATHECAL (800 MCG/ML) [Suspect]
     Active Substance: BACLOFEN
     Indication: PAIN
     Dosage: 146.82 MCG/DAY
  2. BUPIVACAINE INTRATHECAL (20 MG/ML) [Suspect]
     Active Substance: BUPIVACAINE
     Dosage: 3.671 MG/DAY

REACTIONS (1)
  - Medical device site erosion [None]
